FAERS Safety Report 4523226-5 (Version None)
Quarter: 2004Q4

REPORT INFORMATION
  Report Type: 
  Country: None (occurrence: None)
  Receive Date: 20041209
  Receipt Date: 20041209
  Transmission Date: 20050328
  Serious: Yes (Hospitalization)
  Sender: FDA-Public Use
  Company Number: None

PATIENT
  Age: 41 Year
  Sex: Female
  Weight: 98.8842 kg

DRUGS (1)
  1. VIOXX [Suspect]
     Indication: INJURY
     Dosage: 50 MG/1X DAY
     Dates: start: 20010101, end: 20020101

REACTIONS (1)
  - MYOCARDIAL INFARCTION [None]
